FAERS Safety Report 17654615 (Version 2)
Quarter: 2020Q2

REPORT INFORMATION
  Report Type: Spontaneous
  Country: US (occurrence: US)
  Receive Date: 20200410
  Receipt Date: 20200530
  Transmission Date: 20200713
  Serious: Yes (Hospitalization)
  Sender: FDA-Public Use
  Company Number: US-CADILA HEALTHCARE LIMITED-US-ZYDUS-047973

PATIENT
  Age: 10 Month
  Sex: Male

DRUGS (3)
  1. BOSENTAN 62.5 MG TABLETS [Suspect]
     Active Substance: BOSENTAN
     Indication: PULMONARY ARTERIAL HYPERTENSION
     Dosage: 31.25 MILLIGRAM, BID
     Route: 048
     Dates: start: 20200123
  2. BOSENTAN 62.5 MG TABLETS [Suspect]
     Active Substance: BOSENTAN
     Dosage: 31.25 MILLIGRAM, BID
     Route: 048
     Dates: start: 20200123
  3. SILDENAFIL CITRATE. [Concomitant]
     Active Substance: SILDENAFIL CITRATE
     Indication: PRODUCT USED FOR UNKNOWN INDICATION
     Dosage: 1 MG/KG, EVERY 8 HOURS
     Route: 065
     Dates: start: 20190523

REACTIONS (4)
  - Respiratory distress [Unknown]
  - Hospitalisation [Recovered/Resolved]
  - Product use issue [Not Recovered/Not Resolved]
  - Rhinovirus infection [Recovered/Resolved]

NARRATIVE: CASE EVENT DATE: 20200123
